FAERS Safety Report 16050155 (Version 1)
Quarter: 2019Q1

REPORT INFORMATION
  Report Type: Spontaneous
  Country: CH (occurrence: CH)
  Receive Date: 20190308
  Receipt Date: 20190308
  Transmission Date: 20190418
  Serious: Yes (Hospitalization, Other)
  Sender: FDA-Public Use
  Company Number: CH-CELLTRION INC.-2019CH019236

PATIENT

DRUGS (20)
  1. FLAGYL [Suspect]
     Active Substance: METRONIDAZOLE\METRONIDAZOLE HYDROCHLORIDE
     Dosage: 500 MG, TID
     Route: 048
     Dates: start: 20190114, end: 20190131
  2. NEXIUM [Concomitant]
     Active Substance: ESOMEPRAZOLE MAGNESIUM
     Dosage: (CONTINUED AFTER DISCHARGE)
     Dates: start: 20190101
  3. PURSANA [Concomitant]
     Active Substance: FIG FRUIT OIL\SORBITOL
     Dosage: UNK
     Dates: start: 20190101, end: 20190125
  4. DAFALGAN [Concomitant]
     Active Substance: ACETAMINOPHEN
     Indication: PAIN
     Dosage: UNK
     Dates: start: 20190101, end: 20190111
  5. REMERON [Suspect]
     Active Substance: MIRTAZAPINE
     Indication: MAJOR DEPRESSION
     Dosage: 15 MG, 1X/DAY
     Route: 048
     Dates: start: 20190121
  6. INFLECTRA [Suspect]
     Active Substance: INFLIXIMAB-DYYB
     Indication: HIDRADENITIS
  7. RIOPAN [MAGALDRATE] [Concomitant]
     Dosage: UNK
  8. XYLOCAINE [Concomitant]
     Active Substance: LIDOCAINE HYDROCHLORIDE
  9. TRAMAL [Suspect]
     Active Substance: TRAMADOL
     Dosage: UNK UNK, AS NEEDED (AS NECESSARY, ON DEMAND; DRUG NOT ADMINISTERED, NO INTAKE)
     Route: 065
  10. CIPROFLOXACINE [CIPROFLOXACIN HYDROCHLORIDE] [Suspect]
     Active Substance: CIPROFLOXACIN HYDROCHLORIDE
     Dosage: 500 MG, 2X/DAY
     Route: 048
     Dates: start: 20190109, end: 20190114
  11. MORPHINE SULFATE. [Concomitant]
     Active Substance: MORPHINE SULFATE
     Indication: PAIN
     Dosage: UNK
     Dates: start: 20190101, end: 20190122
  12. SILVER NITRATE. [Concomitant]
     Active Substance: SILVER NITRATE
  13. INFLECTRA [Suspect]
     Active Substance: INFLIXIMAB-DYYB
     Indication: PSORIASIS
     Dosage: 400 MG, IN TOTAL
     Route: 042
     Dates: start: 20190118, end: 20190118
  14. TAVANIC [Suspect]
     Active Substance: LEVOFLOXACIN
     Dosage: 500 MG, 1X/DAY
     Route: 048
     Dates: start: 20190114, end: 20190131
  15. CLEXANE [Concomitant]
     Active Substance: ENOXAPARIN SODIUM
     Dosage: UNK
     Dates: start: 20190101, end: 20190125
  16. LUVIT D3 [Concomitant]
     Active Substance: CHOLECALCIFEROL
     Dosage: (CONTINUED AFTER DISCHARGE)
     Dates: start: 20190111
  17. TEMESTA [LORAZEPAM] [Concomitant]
     Active Substance: LORAZEPAM
     Dosage: UNK
     Dates: start: 20190107, end: 20190113
  18. DIPROSALIC [Concomitant]
     Active Substance: BETAMETHASONE DIPROPIONATE
     Indication: PSORIASIS
  19. DIPROLENE [Concomitant]
     Active Substance: BETAMETHASONE DIPROPIONATE
     Indication: PSORIASIS
  20. LAXOBERON [Concomitant]
     Active Substance: SODIUM PICOSULFATE
     Dosage: (CONTINUED AFTER DISCHARGE)
     Dates: start: 20190101

REACTIONS (3)
  - Generalised tonic-clonic seizure [Recovered/Resolved]
  - Cholelithiasis [Unknown]
  - Major depression [Unknown]

NARRATIVE: CASE EVENT DATE: 20190130
